FAERS Safety Report 13633158 (Version 1)
Quarter: 2017Q2

REPORT INFORMATION
  Report Type: Spontaneous
  Country: US (occurrence: US)
  Receive Date: 20170531
  Receipt Date: 20170531
  Transmission Date: 20170830
  Serious: No
  Sender: FDA-Public Use
  Company Number: US-ASTELLAS-1513466

PATIENT
  Age: 83 Year
  Sex: Female

DRUGS (8)
  1. VITAMIN D3 [Concomitant]
     Active Substance: CHOLECALCIFEROL
  2. TARCEVA [Suspect]
     Active Substance: ERLOTINIB HYDROCHLORIDE
     Indication: LUNG NEOPLASM MALIGNANT
     Route: 048
     Dates: start: 20141211
  3. BIFIDOBACTERIUM BIFIDUM [Concomitant]
     Active Substance: BIFIDOBACTERIUM BIFIDUM
  4. TARCEVA [Suspect]
     Active Substance: ERLOTINIB HYDROCHLORIDE
     Indication: NON-SMALL CELL LUNG CANCER
  5. LEVALBUTEROL HYDROCHLORIDE. [Concomitant]
     Active Substance: LEVALBUTEROL HYDROCHLORIDE
  6. SODIUM CHLORIDE. [Concomitant]
     Active Substance: SODIUM CHLORIDE
  7. LORAZEPAM. [Concomitant]
     Active Substance: LORAZEPAM
  8. CLINDAMYCIN PHOSPHATE. [Concomitant]
     Active Substance: CLINDAMYCIN PHOSPHATE

REACTIONS (13)
  - Nausea [Unknown]
  - Decreased appetite [Unknown]
  - Blood sodium decreased [Unknown]
  - Diarrhoea [Not Recovered/Not Resolved]
  - Cough [Not Recovered/Not Resolved]
  - Dizziness [Unknown]
  - Dry skin [Unknown]
  - Flushing [Not Recovered/Not Resolved]
  - Tremor [Not Recovered/Not Resolved]
  - Eye pruritus [Not Recovered/Not Resolved]
  - Burning sensation [Not Recovered/Not Resolved]
  - Visual impairment [Unknown]
  - Fatigue [Unknown]

NARRATIVE: CASE EVENT DATE: 20141219
